FAERS Safety Report 14184917 (Version 1)
Quarter: 2017Q4

REPORT INFORMATION
  Report Type: Spontaneous
  Country: RO (occurrence: RO)
  Receive Date: 20171114
  Receipt Date: 20171114
  Transmission Date: 20180321
  Serious: Yes (Other)
  Sender: FDA-Public Use
  Company Number: PHHY2017RO125940

PATIENT

DRUGS (1)
  1. ENTRESTO [Suspect]
     Active Substance: SACUBITRIL\VALSARTAN
     Indication: CARDIAC FAILURE CHRONIC
     Dosage: 100 MG, BID
     Route: 048

REACTIONS (17)
  - Hypoaesthesia [Unknown]
  - Dysphagia [Unknown]
  - Abdominal distension [Unknown]
  - Headache [Unknown]
  - Lip oedema [Unknown]
  - Oedema [Unknown]
  - Bronchospasm [Unknown]
  - Wheezing [Unknown]
  - Diarrhoea [Unknown]
  - Respiratory distress [Unknown]
  - Laryngospasm [Unknown]
  - Tongue oedema [Unknown]
  - Vomiting [Unknown]
  - Abdominal pain [Unknown]
  - Vertigo [Unknown]
  - Odynophagia [Unknown]
  - Swelling [Unknown]

NARRATIVE: CASE EVENT DATE: 20170821
